FAERS Safety Report 23653226 (Version 1)
Quarter: 2024Q1

REPORT INFORMATION
  Report Type: Spontaneous
  Country: CO (occurrence: CO)
  Receive Date: 20240320
  Receipt Date: 20240320
  Transmission Date: 20240410
  Serious: Yes (Hospitalization)
  Sender: FDA-Public Use
  Company Number: CO-ROCHE-3526869

PATIENT
  Sex: Female

DRUGS (1)
  1. PERJETA [Suspect]
     Active Substance: PERTUZUMAB
     Indication: Breast cancer
     Dosage: DOSE AND FREQUENCY WERE NOT REPORTED
     Route: 065

REACTIONS (8)
  - Pruritus [Unknown]
  - Swelling [Unknown]
  - Genital tract inflammation [Unknown]
  - Ill-defined disorder [Unknown]
  - Discomfort [Unknown]
  - Weight decreased [Unknown]
  - Hypersensitivity [Unknown]
  - Pain [Unknown]
